FAERS Safety Report 16765697 (Version 1)
Quarter: 2019Q3

REPORT INFORMATION
  Report Type: Spontaneous
  Country: US (occurrence: US)
  Receive Date: 20190903
  Receipt Date: 20190903
  Transmission Date: 20191005
  Serious: No
  Sender: FDA-Public Use
  Company Number: US-EMCURE PHARMACEUTICALS LTD-2019-EPL-0600

PATIENT

DRUGS (5)
  1. LIMBITROL DS [Suspect]
     Active Substance: AMITRIPTYLINE\CHLORDIAZEPOXIDE
     Indication: GENERALISED ANXIETY DISORDER
  2. LIMBITROL DS [Suspect]
     Active Substance: AMITRIPTYLINE\CHLORDIAZEPOXIDE
     Indication: SLEEP DISORDER
     Dosage: 2 DOSAGE FORM EVERY EVENING
     Route: 048
  3. TRINTELLIX [Concomitant]
     Active Substance: VORTIOXETINE HYDROBROMIDE
     Indication: ANXIETY
     Dosage: STARTED ON 5 MG, THEY WANT TO TRY AND GET HIM OFF ATIVAN
  4. KEPPRA [Concomitant]
     Active Substance: LEVETIRACETAM
     Indication: MIGRAINE
     Dosage: 250 MILLIGRAM, BID (EVERY 12 HOURS) AND AS NEEDED
     Route: 042
     Dates: end: 20190818
  5. ATIVAN [Concomitant]
     Active Substance: LORAZEPAM
     Indication: ANXIETY
     Dosage: 1 MILLIGRAM, BID (ONCE IN THE MORNING AND ONE IN THE EVENING)
     Route: 042

REACTIONS (1)
  - Product dose omission [Unknown]
